FAERS Safety Report 4959843-8 (Version None)
Quarter: 2006Q1

REPORT INFORMATION
  Report Type: 
  Country: None (occurrence: None)
  Receive Date: 20060327
  Receipt Date: 20060314
  Transmission Date: 20060701
  Serious: Yes (Hospitalization)
  Sender: FDA-Public Use
  Company Number: 105179

PATIENT
  Age: 70 Year
  Sex: Female

DRUGS (2)
  1. DAIVONEX (CALCIPOTRIOL) [Suspect]
     Dosage: 2 APPLICATION (1 APPLICATION, 2 IN 1 D) TO
     Route: 061
     Dates: start: 20040101
  2. DAIVOCET [Concomitant]

REACTIONS (2)
  - DRUG HYPERSENSITIVITY [None]
  - ECZEMA [None]
